FAERS Safety Report 14133780 (Version 1)
Quarter: 2017Q4

REPORT INFORMATION
  Report Type: Report from Study
  Country: None (occurrence: AR)
  Receive Date: 20171027
  Receipt Date: 20171027
  Transmission Date: 20180321
  Serious: Yes (Hospitalization, Other)
  Sender: FDA-Public Use
  Company Number: AR-ABBVIE-17K-007-2116882-00

PATIENT
  Age: 6 Year
  Sex: Female

DRUGS (1)
  1. HUMIRA [Suspect]
     Active Substance: ADALIMUMAB
     Indication: CROHN^S DISEASE
     Route: 058
     Dates: start: 20160201

REACTIONS (3)
  - Immunosuppression [Unknown]
  - Multiple organ dysfunction syndrome [Unknown]
  - Pulmonary mycosis [Not Recovered/Not Resolved]

NARRATIVE: CASE EVENT DATE: 201709
